FAERS Safety Report 6161982-3 (Version None)
Quarter: 2009Q2

REPORT INFORMATION
  Report Type: 
  Country: None (occurrence: None)
  Receive Date: 20090417
  Receipt Date: 20090417
  Transmission Date: 20091009
  Serious: Yes (Other)
  Sender: FDA-Public Use
  Company Number: None

PATIENT
  Age: 33 Year
  Sex: Male
  Weight: 102.0593 kg

DRUGS (2)
  1. CIPROFLOXACIN [Suspect]
     Indication: DIVERTICULITIS
     Dosage: TWICE DAILY
     Dates: start: 20090315, end: 20090322
  2. CIPROFLOXACIN [Suspect]
     Indication: DIVERTICULITIS
     Dosage: TWICE DAILY
     Dates: start: 20090410, end: 20090415

REACTIONS (8)
  - BLOOD GLUCOSE DECREASED [None]
  - DISEASE RECURRENCE [None]
  - DIVERTICULITIS [None]
  - INSOMNIA [None]
  - LIGAMENT DISORDER [None]
  - NERVOUSNESS [None]
  - PAIN [None]
  - RENAL IMPAIRMENT [None]
